FAERS Safety Report 4643303-8 (Version None)
Quarter: 2005Q2

REPORT INFORMATION
  Report Type: 
  Country: None (occurrence: None)
  Receive Date: 20050422
  Receipt Date: 20050408
  Transmission Date: 20051028
  Serious: Yes (Other)
  Sender: FDA-Public Use
  Company Number: 2005058314

PATIENT

DRUGS (1)
  1. BEXTRA [Suspect]
     Indication: ILL-DEFINED DISORDER
     Dosage: 20 MG (10 MG , 2 IN 1 D)
     Dates: start: 20050331

REACTIONS (1)
  - MYOCARDIAL INFARCTION [None]
